FAERS Safety Report 16489519 (Version 1)
Quarter: 2019Q2

REPORT INFORMATION
  Report Type: Other
  Country: US (occurrence: US)
  Receive Date: 20190628
  Receipt Date: 20190628
  Transmission Date: 20190711
  Serious: No
  Sender: FDA-Public Use
  Company Number: US-JIANGSU HENGRUI MEDICINE CO., LTD.-2069750

PATIENT
  Age: 42 Year
  Sex: Female

DRUGS (14)
  1. PACLITAXEL. [Concomitant]
     Active Substance: PACLITAXEL
     Dates: start: 20091102, end: 20100128
  2. ABRAXANE [Concomitant]
     Active Substance: PACLITAXEL
     Dates: start: 20190305, end: 20190514
  3. EXEMESTANE. [Concomitant]
     Active Substance: EXEMESTANE
     Dates: start: 20160717, end: 20170104
  4. DOXORUBICIN [Concomitant]
     Active Substance: DOXORUBICIN
     Dates: start: 20090916, end: 20091029
  5. CYCLOPHOSPHAMIDE FOR INJECTION USP, 500 MG, 1 G AND 2 G PER SINGLE-DOS [Suspect]
     Active Substance: CYCLOPHOSPHAMIDE
     Indication: BREAST CANCER FEMALE
     Dates: start: 20190306, end: 20190514
  6. TAMOXIFEN [Concomitant]
     Active Substance: TAMOXIFEN
     Dates: start: 20120905, end: 20140224
  7. GEMCITABINE [Concomitant]
     Active Substance: GEMCITABINE\GEMCITABINE HYDROCHLORIDE
     Dates: start: 20130703, end: 20131203
  8. RIBOCICLIB. [Concomitant]
     Active Substance: RIBOCICLIB
     Dates: start: 20190305, end: 20190514
  9. METHOTREXATE. [Concomitant]
     Active Substance: METHOTREXATE
     Dates: start: 20190305, end: 20190514
  10. CARBOPLATIN. [Concomitant]
     Active Substance: CARBOPLATIN
     Dates: start: 20190305, end: 20190514
  11. VINORELBINE [Concomitant]
     Active Substance: VINORELBINE\VINORELBINE TARTRATE
     Dates: start: 20190305, end: 20190514
  12. LETROZOLE. [Concomitant]
     Active Substance: LETROZOLE
  13. FLUOROURACIL. [Concomitant]
     Active Substance: FLUOROURACIL
     Dates: end: 20190514
  14. ERIBULIN [Concomitant]
     Active Substance: ERIBULIN
     Dates: start: 20190305, end: 20190514

REACTIONS (1)
  - Disease progression [Not Recovered/Not Resolved]
